FAERS Safety Report 23122754 (Version 2)
Quarter: 2023Q4

REPORT INFORMATION
  Report Type: Report from Study
  Country: US (occurrence: US)
  Receive Date: 20231030
  Receipt Date: 20231101
  Transmission Date: 20240109
  Serious: Yes (Other)
  Sender: FDA-Public Use
  Company Number: US-ABBVIE-5469055

PATIENT
  Sex: Female

DRUGS (1)
  1. HUMIRA [Suspect]
     Active Substance: ADALIMUMAB
     Indication: Product used for unknown indication
     Dosage: HUMIRA  UNKNOWN  DEVICE
     Route: 058
     Dates: start: 2020

REACTIONS (4)
  - Intestinal obstruction [Unknown]
  - Illness [Unknown]
  - Drug ineffective [Unknown]
  - Crohn^s disease [Unknown]
